FAERS Safety Report 18274258 (Version 1)
Quarter: 2020Q3

REPORT INFORMATION
  Report Type: Spontaneous
  Country: US (occurrence: US)
  Receive Date: 20200916
  Receipt Date: 20200916
  Transmission Date: 20201103
  Serious: Yes (Hospitalization, Other)
  Sender: FDA-Public Use
  Company Number: US-ALEMBIC PHARMACUETICALS LIMITED-2020SCAL000408

PATIENT

DRUGS (3)
  1. CLOZAPINE. [Interacting]
     Active Substance: CLOZAPINE
     Indication: SCHIZOPHRENIA
     Dosage: HIGHER DOSE THAN WHAT SHE WAS TAKING PRIOR TO ADMISSION
  2. PRAMIPEXOLE DIHYDROCHLORIDE. [Suspect]
     Active Substance: PRAMIPEXOLE DIHYDROCHLORIDE
     Indication: RESTLESS LEGS SYNDROME
     Dosage: 0.5 MG, OD
  3. CLOZAPINE. [Interacting]
     Active Substance: CLOZAPINE
     Dosage: 350 MG

REACTIONS (9)
  - Distractibility [Recovered/Resolved]
  - Impulsive behaviour [Recovered/Resolved]
  - Drug interaction [Unknown]
  - Abnormal behaviour [Recovered/Resolved]
  - Schizophrenia [Recovered/Resolved]
  - Psychotic disorder [Recovered/Resolved]
  - Somatic delusion [Recovered/Resolved]
  - Thinking abnormal [Recovered/Resolved]
  - Paranoia [Recovered/Resolved]
